FAERS Safety Report 4950831-4 (Version None)
Quarter: 2006Q1

REPORT INFORMATION
  Report Type: 
  Country: None (occurrence: None)
  Receive Date: 20060322
  Receipt Date: 20021101
  Transmission Date: 20060701
  Serious: Yes (Other)
  Sender: FDA-Public Use
  Company Number: DE-BRISTOL-MYERS SQUIBB COMPANY-13313853

PATIENT
  Age: 32 Year
  Sex: Female
  Weight: 45 kg

DRUGS (10)
  1. VIDEX [Suspect]
     Indication: HIV INFECTION
     Dosage: THERAPY: UNSPECIFIED YEAR 6 MONTHS; 1997 3 MONTHS
  2. ZERIT [Suspect]
     Dates: start: 19970101
  3. ZIDOVUDINE [Suspect]
     Indication: HIV INFECTION
     Dosage: THERAPY: 1991 4 MONTHS; 1994 2 MONTHS; UNSPECIFIED YEAR 6 MONTHS
     Dates: start: 19910101
  4. LAMIVUDINE [Suspect]
     Indication: HIV INFECTION
     Dates: start: 19940101
  5. NEVIRAPINE [Suspect]
     Indication: HIV INFECTION
     Dates: start: 19970101
  6. TRIZIVIR [Suspect]
     Indication: HIV INFECTION
     Dates: start: 20020401
  7. INTERFERON [Concomitant]
     Dates: start: 19970101
  8. POLAMIDON SUBSTITUTION [Concomitant]
     Dates: start: 19910101
  9. DIAZEPAM [Concomitant]
     Dosage: 20-80 MG DAILY
  10. PENTAMIDINE AEROSOL [Concomitant]

REACTIONS (26)
  - ANAL CANCER [None]
  - CERVICAL DYSPLASIA [None]
  - COLD AGGLUTININS [None]
  - CONDYLOMA ACUMINATUM [None]
  - CONSTIPATION [None]
  - COORDINATION ABNORMAL [None]
  - CRYOGLOBULINAEMIA [None]
  - DEPRESSION [None]
  - DRUG ABUSER [None]
  - HAEMORRHOIDS [None]
  - HEPATIC CIRRHOSIS [None]
  - HEPATITIS C [None]
  - HERPES VIRUS INFECTION [None]
  - HYPOREFLEXIA [None]
  - INJECTION SITE ABSCESS [None]
  - LEUKOPLAKIA [None]
  - LIPOATROPHY [None]
  - NIGHT SWEATS [None]
  - ORAL CANDIDIASIS [None]
  - PALLANAESTHESIA [None]
  - POLYNEUROPATHY [None]
  - SENSORY LOSS [None]
  - SLEEP DISORDER [None]
  - THROMBOCYTOPENIA [None]
  - TRICUSPID VALVE DISEASE [None]
  - WEIGHT DECREASED [None]
